FAERS Safety Report 24962447 (Version 1)
Quarter: 2025Q1

REPORT INFORMATION
  Report Type: Spontaneous
  Country: JP (occurrence: JP)
  Receive Date: 20250212
  Receipt Date: 20250212
  Transmission Date: 20250408
  Serious: Yes (Other)
  Sender: BRISTOL-MYERS SQUIBB COMPANY
  Company Number: JP-BRISTOL-MYERS SQUIBB COMPANY-2025-018554

PATIENT
  Age: 4 Decade
  Sex: Male

DRUGS (2)
  1. YERVOY [Suspect]
     Active Substance: IPILIMUMAB
     Indication: Colon cancer
     Route: 041
  2. OPDIVO [Suspect]
     Active Substance: NIVOLUMAB
     Indication: Colon cancer

REACTIONS (6)
  - Malaise [Unknown]
  - Vomiting [Unknown]
  - Colon cancer metastatic [Unknown]
  - Ileus [Unknown]
  - Hyponatraemia [Unknown]
  - Diabetic ketoacidosis [Unknown]
